FAERS Safety Report 18716419 (Version 1)
Quarter: 2021Q1

REPORT INFORMATION
  Report Type: Spontaneous
  Country: US (occurrence: US)
  Receive Date: 20210107
  Receipt Date: 20210107
  Transmission Date: 20210419
  Serious: No
  Sender: FDA-Public Use
  Company Number: None

PATIENT
  Age: 49 Year
  Sex: Male

DRUGS (1)
  1. DULOXETINE (DULOXETINE HCL 20MG CAP, EC) [Suspect]
     Active Substance: DULOXETINE HYDROCHLORIDE
     Indication: BIPOLAR I DISORDER
     Route: 048
     Dates: start: 20191108, end: 20200529

REACTIONS (5)
  - Sedation [None]
  - Dyskinesia [None]
  - Disorientation [None]
  - Confusional state [None]
  - Insomnia [None]

NARRATIVE: CASE EVENT DATE: 20200529
